FAERS Safety Report 25711939 (Version 2)
Quarter: 2025Q3

REPORT INFORMATION
  Report Type: Spontaneous
  Country: YE (occurrence: YE)
  Receive Date: 20250821
  Receipt Date: 20250829
  Transmission Date: 20251021
  Serious: Yes (Other)
  Sender: BAUSCH AND LOMB
  Company Number: YE-BAUSCH-BH-2025-016384

PATIENT
  Age: 25 Year
  Sex: Male

DRUGS (2)
  1. DEXAMETHASONE [Suspect]
     Active Substance: DEXAMETHASONE
     Indication: Cough
     Route: 065
  2. DEXAMETHASONE [Suspect]
     Active Substance: DEXAMETHASONE
     Indication: Upper respiratory tract infection

REACTIONS (3)
  - Drug dependence [Unknown]
  - Cushing^s syndrome [Unknown]
  - Drug abuse [Unknown]
